FAERS Safety Report 24956498 (Version 1)
Quarter: 2025Q1

REPORT INFORMATION
  Report Type: Spontaneous
  Country: IN (occurrence: IN)
  Receive Date: 20250211
  Receipt Date: 20250211
  Transmission Date: 20250408
  Serious: Yes (Death, Other)
  Sender: ROCHE
  Company Number: IN-BoehringerIngelheim-2025-BI-007291

PATIENT
  Age: 50 Year
  Sex: Male

DRUGS (2)
  1. METALYSE [Suspect]
     Active Substance: TENECTEPLASE
     Indication: Ischaemic stroke
     Route: 042
  2. LABETALOL HYDROCHLORIDE [Concomitant]
     Active Substance: LABETALOL HYDROCHLORIDE
     Indication: Hypertension
     Route: 042

REACTIONS (4)
  - Arrhythmia [Fatal]
  - Cardiogenic shock [Fatal]
  - Peripheral artery occlusion [Unknown]
  - Hypersensitivity [Unknown]
